FAERS Safety Report 8506202-7 (Version None)
Quarter: 2012Q3

REPORT INFORMATION
  Report Type: 
  Country: None (occurrence: None)
  Receive Date: 20120706
  Receipt Date: 20120706
  Transmission Date: 20120928
  Serious: Yes (Hospitalization)
  Sender: FDA-Public Use
  Company Number: None

PATIENT
  Sex: Female
  Weight: 79 kg

DRUGS (9)
  1. NEULASTA [Concomitant]
  2. PACLITAXEL [Suspect]
     Dosage: 330 MG
  3. DEXAMETHASONE [Concomitant]
  4. DIPHENHYDRAMINE HCL [Concomitant]
  5. LORAZEPAM [Concomitant]
  6. CARBOPLATIN [Suspect]
     Dosage: 733 MG
  7. ONDANSETRON [Concomitant]
  8. EFFEXOR [Concomitant]
  9. FAMOTIDINE [Concomitant]

REACTIONS (4)
  - VOMITING [None]
  - CONDITION AGGRAVATED [None]
  - ABDOMINAL PAIN [None]
  - NAUSEA [None]
